FAERS Safety Report 15444710 (Version 2)
Quarter: 2018Q4

REPORT INFORMATION
  Report Type: Report from Study
  Country: US (occurrence: US)
  Receive Date: 20180928
  Receipt Date: 20181105
  Transmission Date: 20190204
  Serious: Yes (Death, Hospitalization)
  Sender: FDA-Public Use
  Company Number: US-EISAI MEDICAL RESEARCH-EC-2018-045541

PATIENT
  Age: 55 Year
  Sex: Female
  Weight: 63.5 kg

DRUGS (18)
  1. PROAIR HFA [Concomitant]
     Active Substance: ALBUTEROL SULFATE
  2. AROMASIN [Concomitant]
     Active Substance: EXEMESTANE
  3. ADVIL [Concomitant]
     Active Substance: IBUPROFEN
  4. PEMBROLIZUMAB. [Suspect]
     Active Substance: PEMBROLIZUMAB
     Indication: BREAST CANCER METASTATIC
     Route: 041
     Dates: start: 20180829, end: 20181001
  5. AMLODIPINE [Concomitant]
     Active Substance: AMLODIPINE BESYLATE
  6. SINGULAIR [Concomitant]
     Active Substance: MONTELUKAST SODIUM
  7. OXYCODONE [Concomitant]
     Active Substance: OXYCODONE
  8. TOPAMAX [Concomitant]
     Active Substance: TOPIRAMATE
  9. FAMVIR [Concomitant]
     Active Substance: FAMCICLOVIR
  10. COLACE [Concomitant]
     Active Substance: DOCUSATE SODIUM
  11. ASTEPRO [Concomitant]
     Active Substance: AZELASTINE HYDROCHLORIDE
  12. TOPROL XL [Concomitant]
     Active Substance: METOPROLOL SUCCINATE
  13. FIORICET [Concomitant]
     Active Substance: ACETAMINOPHEN\BUTALBITAL\CAFFEINE
  14. DECADRON [Concomitant]
     Active Substance: DEXAMETHASONE
  15. ATIVAN [Concomitant]
     Active Substance: LORAZEPAM
  16. COMPAZINE [Concomitant]
     Active Substance: PROCHLORPERAZINE MALEATE
  17. NEURONTIN [Concomitant]
     Active Substance: GABAPENTIN
  18. ERIBULIN [Suspect]
     Active Substance: ERIBULIN
     Indication: BREAST CANCER METASTATIC
     Route: 041
     Dates: start: 20180207, end: 20180822

REACTIONS (5)
  - Malignant neoplasm progression [Fatal]
  - Fatigue [Not Recovered/Not Resolved]
  - Abdominal pain upper [Not Recovered/Not Resolved]
  - Dyspnoea [Not Recovered/Not Resolved]
  - Pyrexia [Not Recovered/Not Resolved]

NARRATIVE: CASE EVENT DATE: 20180924
